FAERS Safety Report 5142921-0 (Version None)
Quarter: 2006Q4

REPORT INFORMATION
  Report Type: 
  Country: None (occurrence: None)
  Receive Date: 20061030
  Receipt Date: 20061016
  Transmission Date: 20070319
  Serious: Yes (Death, Life-Threatening, Hospitalization, Disabling)
  Sender: FDA-Public Use
  Company Number: 15011

PATIENT
  Age: 5 Month
  Sex: Female
  Weight: 7.8 kg

DRUGS (4)
  1. ATRACURIUM BESYLATE [Suspect]
     Dates: start: 20060620, end: 20060620
  2. PROPOFOL [Suspect]
     Dates: start: 20060620, end: 20060620
  3. DESFLURANE [Suspect]
     Dates: start: 20060620, end: 20060620
  4. AUGMENTIN '125' [Concomitant]

REACTIONS (4)
  - IDIOSYNCRATIC DRUG REACTION [None]
  - MYOPATHY [None]
  - POST PROCEDURAL COMPLICATION [None]
  - RESPIRATORY ARREST [None]
